FAERS Safety Report 24196068 (Version 4)
Quarter: 2024Q4

REPORT INFORMATION
  Report Type: Spontaneous
  Country: US (occurrence: US)
  Receive Date: 20240809
  Receipt Date: 20241117
  Transmission Date: 20250115
  Serious: Yes (Hospitalization, Other)
  Sender: BRISTOL-MYERS SQUIBB COMPANY
  Company Number: US-BRISTOL-MYERS SQUIBB COMPANY-2024-124186

PATIENT
  Age: 80 Year
  Sex: Female
  Weight: 48.99 kg

DRUGS (2)
  1. LENALIDOMIDE [Suspect]
     Active Substance: LENALIDOMIDE
     Indication: 5q minus syndrome
     Dosage: TAKE 1 CAPSULE BY MOUTH EVERY MONDAY, WEDNESDAY, AND FRIDAY.
     Route: 048
  2. LENALIDOMIDE [Suspect]
     Active Substance: LENALIDOMIDE
     Dosage: TAKE 1 CAPSULE BY MOUTH EVERY MONDAY, WEDNESDAY, AND FRIDAY.
     Route: 048

REACTIONS (4)
  - Gastrointestinal disorder [Unknown]
  - Obstruction gastric [Recovered/Resolved]
  - Hypertension [Unknown]
  - Decreased appetite [Not Recovered/Not Resolved]
